FAERS Safety Report 7732253-6 (Version None)
Quarter: 2011Q3

REPORT INFORMATION
  Report Type: 
  Country: None (occurrence: None)
  Receive Date: 20110906
  Receipt Date: 20110831
  Transmission Date: 20111222
  Serious: Yes (Death, Hospitalization)
  Sender: FDA-Public Use
  Company Number: US-ASTRAZENECA-2011SE52255

PATIENT
  Age: 64 Year
  Sex: Male

DRUGS (5)
  1. URACIL [Concomitant]
  2. PROPRANOLOL [Concomitant]
  3. CRESTOR [Suspect]
     Dosage: TOTAL DAILY DOSE OF 10 MG
     Route: 048
     Dates: start: 20110101
  4. ZOFRAN [Concomitant]
  5. ZENTIL [Concomitant]

REACTIONS (9)
  - THYROID FUNCTION TEST ABNORMAL [None]
  - LOSS OF CONSCIOUSNESS [None]
  - RENAL FAILURE [None]
  - SKIN ODOUR ABNORMAL [None]
  - ABDOMINAL DISCOMFORT [None]
  - GALLBLADDER DISORDER [None]
  - HEPATIC FAILURE [None]
  - PNEUMONIA [None]
  - DECREASED APPETITE [None]
